FAERS Safety Report 6683015-2 (Version None)
Quarter: 2010Q2

REPORT INFORMATION
  Report Type: 
  Country: None (occurrence: None)
  Receive Date: 20100415
  Receipt Date: 20100405
  Transmission Date: 20101027
  Serious: Yes (Congenital Anomaly)
  Sender: FDA-Public Use
  Company Number: DE-ROCHE-696469

PATIENT

DRUGS (3)
  1. ISOTRETINOIN [Suspect]
     Indication: ACNE
     Route: 064
  2. DIENOGEST [Concomitant]
     Dosage: UNTIL WEEK 6.2
  3. ETHINYL ESTRADIOL [Concomitant]
     Dosage: UNTIL WEEK 6.2

REACTIONS (2)
  - DYSMORPHISM [None]
  - HIP DYSPLASIA [None]
